FAERS Safety Report 7949160-6 (Version None)
Quarter: 2011Q4

REPORT INFORMATION
  Report Type: 
  Country: None (occurrence: None)
  Receive Date: 20111130
  Receipt Date: 20111123
  Transmission Date: 20120403
  Serious: Yes (Other)
  Sender: FDA-Public Use
  Company Number: IL-B.I. PHARMACEUTICALS,INC./RIDGEFIELD-2011-AP-00664RI

PATIENT
  Age: 88 Year
  Sex: Male

DRUGS (1)
  1. PRADAXA [Suspect]
     Indication: ANTICOAGULANT THERAPY
     Dosage: 300 MG

REACTIONS (8)
  - DEEP VEIN THROMBOSIS [None]
  - PAIN [None]
  - RASH [None]
  - DECREASED ACTIVITY [None]
  - MALAISE [None]
  - ARTHRALGIA [None]
  - HYPERSENSITIVITY [None]
  - PRURITUS [None]
